FAERS Safety Report 5290864-4 (Version None)
Quarter: 2007Q2

REPORT INFORMATION
  Report Type: 
  Country: None (occurrence: None)
  Receive Date: 20070409
  Receipt Date: 20070327
  Transmission Date: 20071010
  Serious: Yes (Other)
  Sender: FDA-Public Use
  Company Number: US-PFIZER INC-2007024223

PATIENT
  Sex: Female

DRUGS (2)
  1. GEODON [Suspect]
     Indication: DEPRESSION
     Dosage: DAILY DOSE:120MG-TEXT:40MG QD AND 80MG QHS
  2. GEODON [Suspect]
     Indication: ANXIETY DISORDER

REACTIONS (2)
  - AMNESIA [None]
  - DISSOCIATION [None]
